FAERS Safety Report 26158218 (Version 2)
Quarter: 2025Q4

REPORT INFORMATION
  Report Type: Spontaneous
  Country: JP (occurrence: JP)
  Receive Date: 20251215
  Receipt Date: 20251224
  Transmission Date: 20260117
  Serious: Yes (Death, Hospitalization, Other)
  Sender: UCB
  Company Number: JP-UCBJ-CD202516362UCBPHAPROD

PATIENT
  Age: 81 Year

DRUGS (1)
  1. LEVETIRACETAM [Suspect]
     Active Substance: LEVETIRACETAM
     Indication: Seizure
     Dosage: UNK
     Route: 061

REACTIONS (2)
  - Haematoma [Fatal]
  - Pneumonia aspiration [Fatal]
